FAERS Safety Report 8425802-6 (Version None)
Quarter: 2012Q2

REPORT INFORMATION
  Report Type: 
  Country: None (occurrence: None)
  Receive Date: 20120611
  Receipt Date: 20120605
  Transmission Date: 20120825
  Serious: No
  Sender: FDA-Public Use
  Company Number: US-PFIZER INC-2012135691

PATIENT
  Sex: Male
  Weight: 61.224 kg

DRUGS (3)
  1. CLINDAMYCIN HCL [Suspect]
     Indication: PHARYNGITIS
     Dosage: UNK, 3X/DAY
     Dates: start: 20110228, end: 20110301
  2. ACETAMINOPHEN [Concomitant]
     Indication: HEADACHE
     Dosage: UNK
  3. IMODIUM [Concomitant]
     Indication: DIARRHOEA
     Dosage: UNK
     Dates: end: 20110101

REACTIONS (2)
  - DRUG INEFFECTIVE [None]
  - DIARRHOEA [None]
